FAERS Safety Report 8585679 (Version 19)
Quarter: 2022Q3

REPORT INFORMATION
  Report Type: Spontaneous
  Country: US (occurrence: US)
  Receive Date: 20120530
  Receipt Date: 20220821
  Transmission Date: 20221026
  Serious: Yes (Hospitalization, Other)
  Sender: FDA-Public Use
  Company Number: US-GLAXOSMITHKLINE-A0972199A

PATIENT
  Age: 55 Year
  Sex: Female
  Weight: 51 kg

DRUGS (10)
  1. FLOLAN [Suspect]
     Active Substance: EPOPROSTENOL SODIUM
     Indication: Cor pulmonale chronic
     Dosage: 19 NG/KG/MIN CONTINUOUSLYCONCENTRATION: 30,000 NG/MLPUMP RATE NOT REPORTEDVIAL STRENGTH 1.5MG
     Route: 042
     Dates: start: 19990106
  2. FLOLAN [Suspect]
     Active Substance: EPOPROSTENOL SODIUM
     Dosage: UNK
     Dates: start: 19990106
  3. FLOLAN [Suspect]
     Active Substance: EPOPROSTENOL SODIUM
     Dosage: UNK
     Dates: start: 19990106
  4. FLOLAN [Suspect]
     Active Substance: EPOPROSTENOL SODIUM
     Dosage: UNK
     Dates: start: 19990106
  5. FLOLAN [Suspect]
     Active Substance: EPOPROSTENOL SODIUM
     Dosage: UNK
  6. FLOLAN [Suspect]
     Active Substance: EPOPROSTENOL SODIUM
     Dosage: UNK
  7. FLOLAN [Suspect]
     Active Substance: EPOPROSTENOL SODIUM
     Dosage: 19 NG/KG/MIN, CO
     Route: 042
     Dates: start: 19990604
  8. VELETRI [Suspect]
     Active Substance: EPOPROSTENOL
     Indication: Cor pulmonale chronic
     Route: 042
     Dates: start: 20130703
  9. REVATIO [Concomitant]
     Active Substance: SILDENAFIL CITRATE
  10. COUMADIN [Concomitant]
     Active Substance: WARFARIN SODIUM

REACTIONS (10)
  - Device related infection [Recovered/Resolved]
  - Catheter site infection [Unknown]
  - Diarrhoea [Recovered/Resolved]
  - Pain in jaw [Recovered/Resolved]
  - Headache [Recovered/Resolved]
  - Nasopharyngitis [Recovered/Resolved]
  - Pain in extremity [Recovered/Resolved]
  - Catheter site erythema [Recovered/Resolved]
  - Cyst aspiration [Unknown]
  - Influenza [Unknown]

NARRATIVE: CASE EVENT DATE: 20120326
